FAERS Safety Report 8422480-7 (Version None)
Quarter: 2012Q2

REPORT INFORMATION
  Report Type: 
  Country: None (occurrence: None)
  Receive Date: 20120604
  Receipt Date: 20120517
  Transmission Date: 20120825
  Serious: Yes (Other)
  Sender: FDA-Public Use
  Company Number: ADR-2012-01002

PATIENT
  Sex: Male

DRUGS (2)
  1. BACLOFEN [Suspect]
     Indication: MUSCLE SPASTICITY
  2. BACLOFEN [Suspect]
     Indication: CEREBRAL PALSY

REACTIONS (2)
  - DEVICE BREAKAGE [None]
  - IMPLANT SITE INFECTION [None]
